FAERS Safety Report 10133435 (Version 1)
Quarter: 2014Q2

REPORT INFORMATION
  Report Type: Report from Study
  Country: US (occurrence: US)
  Receive Date: 20140428
  Receipt Date: 20140428
  Transmission Date: 20141212
  Serious: Yes (Other)
  Sender: FDA-Public Use
  Company Number: PHEH2014US008096

PATIENT
  Sex: Female

DRUGS (2)
  1. TOBI [Suspect]
     Indication: BRONCHITIS
     Dosage: 300 MG, UNK
     Route: 055
  2. TOBI [Suspect]
     Indication: PSEUDOMONAS INFECTION

REACTIONS (2)
  - Neuropathy peripheral [Unknown]
  - Carpal tunnel syndrome [Unknown]
